FAERS Safety Report 21554812 (Version 1)
Quarter: 2022Q4

REPORT INFORMATION
  Report Type: Report from Study
  Country: US (occurrence: US)
  Receive Date: 20221104
  Receipt Date: 20221104
  Transmission Date: 20230112
  Serious: No
  Sender: FDA-Public Use
  Company Number: US-ABBVIE-4152570

PATIENT
  Age: 57 Year
  Sex: Female

DRUGS (4)
  1. HUMIRA [Suspect]
     Active Substance: ADALIMUMAB
     Indication: Rheumatoid arthritis
     Dosage: CITRATE FREE
     Route: 058
     Dates: start: 20220922
  2. Moderna [Concomitant]
     Indication: COVID-19 immunisation
     Dosage: FIRST DOSE ?FREQUENCY 1 IN ONCE
     Route: 030
     Dates: start: 20210423, end: 20210423
  3. Moderna [Concomitant]
     Indication: COVID-19 immunisation
     Dosage: SECOND DOSE?FREQUENCY 1 IN ONCE
     Route: 030
     Dates: start: 20210520, end: 20210520
  4. Moderna [Concomitant]
     Indication: COVID-19 immunisation
     Dosage: THIRD DOSE?FREQUENCY 1 IN ONCE
     Route: 030
     Dates: start: 20211126, end: 20211126

REACTIONS (2)
  - Peripheral coldness [Recovered/Resolved]
  - Headache [Recovered/Resolved]

NARRATIVE: CASE EVENT DATE: 20220922
